FAERS Safety Report 16335553 (Version 1)
Quarter: 2019Q2

REPORT INFORMATION
  Report Type: Spontaneous
  Country: GB (occurrence: GB)
  Receive Date: 20190521
  Receipt Date: 20190521
  Transmission Date: 20190711
  Serious: Yes (Other)
  Sender: FDA-Public Use
  Company Number: GB-ASTELLAS-2019US020845

PATIENT
  Age: 5 Decade
  Sex: Female

DRUGS (1)
  1. AMPHOTERICIN B, LIPOSOME [Suspect]
     Active Substance: AMPHOTERICIN B
     Indication: RESPIRATORY TRACT INFECTION FUNGAL
     Dosage: UNK UNK, UNKNOWN FREQ.
     Route: 042
     Dates: start: 20190211, end: 20190222

REACTIONS (3)
  - Electrolyte imbalance [Unknown]
  - Blister [Recovered/Resolved]
  - Rash maculo-papular [Recovered/Resolved]
